FAERS Safety Report 4326183-X (Version None)
Quarter: 2004Q1

REPORT INFORMATION
  Report Type: 
  Country: None (occurrence: None)
  Receive Date: 20040319
  Receipt Date: 20040106
  Transmission Date: 20041129
  Serious: No
  Sender: FDA-Public Use
  Company Number: US-JNJFOC-20040101326

PATIENT
  Age: 28 Year
  Sex: Female
  Weight: 95.2554 kg

DRUGS (1)
  1. ORTHO EVRA [Suspect]
     Indication: CONTRACEPTION
     Dosage: 1 DOSE(S), TRANSDERMAL
     Route: 062
     Dates: start: 20031230, end: 20040105

REACTIONS (7)
  - ABDOMINAL PAIN [None]
  - BREAST TENDERNESS [None]
  - FATIGUE [None]
  - MOOD ALTERED [None]
  - MUSCULOSKELETAL DISCOMFORT [None]
  - NAUSEA [None]
  - VISION BLURRED [None]
